FAERS Safety Report 8354647-0 (Version None)
Quarter: 2012Q2

REPORT INFORMATION
  Report Type: 
  Country: None (occurrence: None)
  Receive Date: 20120511
  Receipt Date: 20120507
  Transmission Date: 20120825
  Serious: Yes (Hospitalization)
  Sender: FDA-Public Use
  Company Number: DE-ABBOTT-12P-062-0933236-00

PATIENT
  Age: 66 Year
  Sex: Female

DRUGS (6)
  1. HUMIRA [Suspect]
     Dates: start: 20120315
  2. AMLODIPINE [Concomitant]
     Indication: HYPERTENSION
  3. METHOTREXATE [Concomitant]
     Indication: RHEUMATOID ARTHRITIS
  4. CORTISONE ACETATE [Concomitant]
     Indication: RHEUMATOID ARTHRITIS
  5. BISOPROLOL FUMARATE [Concomitant]
     Indication: HYPERTENSION
  6. HUMIRA [Suspect]
     Indication: RHEUMATOID ARTHRITIS
     Dates: start: 20101115, end: 20120201

REACTIONS (1)
  - OSTEOARTHRITIS [None]
